FAERS Safety Report 21701854 (Version 1)
Quarter: 2022Q4

REPORT INFORMATION
  Report Type: Report from Study
  Country: US (occurrence: US)
  Receive Date: 20221208
  Receipt Date: 20221208
  Transmission Date: 20230112
  Serious: No
  Sender: FDA-Public Use
  Company Number: US-ABBVIE-4193801

PATIENT
  Sex: Female

DRUGS (5)
  1. HUMIRA [Suspect]
     Active Substance: ADALIMUMAB
     Indication: Rheumatoid arthritis
     Route: 058
     Dates: start: 20220926
  2. HUMIRA [Suspect]
     Active Substance: ADALIMUMAB
     Indication: Psoriasis
  3. HUMIRA [Suspect]
     Active Substance: ADALIMUMAB
     Indication: Ankylosing spondylitis
  4. Moderna [Concomitant]
     Indication: COVID-19 immunisation
     Dosage: 3RD DOSE/BOOSTER, ADMINISTERED ONCE
     Route: 030
     Dates: start: 202112, end: 202112
  5. Moderna [Concomitant]
     Indication: COVID-19 immunisation
     Dosage: VACCINE, ADMINISTERED ONCE
     Route: 030

REACTIONS (3)
  - Therapeutic response shortened [Unknown]
  - Pruritus [Recovered/Resolved]
  - Erythema [Recovered/Resolved]
